FAERS Safety Report 5050986-X (Version None)
Quarter: 2006Q3

REPORT INFORMATION
  Report Type: 
  Country: None (occurrence: None)
  Receive Date: 20060714
  Receipt Date: 20060609
  Transmission Date: 20061208
  Serious: Yes (Life-Threatening, Hospitalization, Other)
  Sender: FDA-Public Use
  Company Number: PHBS2006JP08779

PATIENT
  Age: 83 Year
  Sex: Female

DRUGS (3)
  1. DIOVAN [Suspect]
     Indication: HYPERTENSION
     Dosage: 20 MG/DAY
     Route: 048
     Dates: start: 20060425, end: 20060527
  2. TAKEPRON [Suspect]
     Dosage: 30 MG/DAY
     Route: 048
     Dates: start: 20060422, end: 20060527
  3. ONEALFA [Suspect]
     Indication: COMPRESSION FRACTURE
     Dosage: 1.0 UG/DAY
     Route: 048
     Dates: end: 20060528

REACTIONS (13)
  - AGRANULOCYTOSIS [None]
  - ALANINE AMINOTRANSFERASE INCREASED [None]
  - ASPARTATE AMINOTRANSFERASE INCREASED [None]
  - BLOOD ALKALINE PHOSPHATASE INCREASED [None]
  - C-REACTIVE PROTEIN INCREASED [None]
  - CIRCULATORY COLLAPSE [None]
  - GRANULOCYTOPENIA [None]
  - INFLAMMATION [None]
  - LYMPHOCYTE COUNT INCREASED [None]
  - MALAISE [None]
  - NEUTROPHIL COUNT DECREASED [None]
  - PYREXIA [None]
  - WHITE BLOOD CELL COUNT DECREASED [None]
